FAERS Safety Report 25135989 (Version 1)
Quarter: 2025Q1

REPORT INFORMATION
  Report Type: Spontaneous
  Country: US (occurrence: None)
  Receive Date: 20250328
  Receipt Date: 20250328
  Transmission Date: 20250408
  Serious: Yes (Disabling, Other)
  Sender: FDA-CTU
  Company Number: None

PATIENT
  Age: 62 Year
  Sex: Female
  Weight: 73.35 kg

DRUGS (11)
  1. SKYRIZI [Suspect]
     Active Substance: RISANKIZUMAB-RZAA
     Indication: Colitis ulcerative
     Dates: start: 20250122, end: 20250217
  2. SKYRIZI [Suspect]
     Active Substance: RISANKIZUMAB-RZAA
     Indication: Psoriatic arthropathy
  3. METOPROLOL [Concomitant]
     Active Substance: METOPROLOL
  4. Nifedipine HCTZ [Concomitant]
  5. PREDNISONE [Concomitant]
     Active Substance: PREDNISONE
  6. FAMOTIDINE [Concomitant]
     Active Substance: FAMOTIDINE
  7. PRAVASTATIN [Concomitant]
     Active Substance: PRAVASTATIN
  8. VITAMIN D [Concomitant]
     Active Substance: VITAMIN D NOS
  9. ALLEGRA [Concomitant]
     Active Substance: FEXOFENADINE HYDROCHLORIDE
  10. LOSARTAN [Suspect]
     Active Substance: LOSARTAN
  11. POTASSIUM [Suspect]
     Active Substance: POTASSIUM

REACTIONS (8)
  - Headache [None]
  - Hypertension [None]
  - Dizziness [None]
  - Inflammation [None]
  - Angioedema [None]
  - Weight increased [None]
  - Blood potassium increased [None]
  - Drug hypersensitivity [None]

NARRATIVE: CASE EVENT DATE: 20250122
